FAERS Safety Report 10616553 (Version 1)
Quarter: 2014Q4

REPORT INFORMATION
  Report Type: Spontaneous
  Country: US (occurrence: US)
  Receive Date: 20141201
  Receipt Date: 20141201
  Transmission Date: 20150529
  Serious: No
  Sender: FDA-Public Use
  Company Number: US-TEVA-526204USA

PATIENT
  Age: 21 Year
  Sex: Female
  Weight: 79.45 kg

DRUGS (4)
  1. CRANBERRY SUPPLEMENTS [Concomitant]
     Indication: NUTRITIONAL SUPPLEMENTATION
  2. VITAMIN 5 HTP [Concomitant]
     Indication: MOOD SWINGS
  3. PLAN B ONE-STEP [Suspect]
     Active Substance: LEVONORGESTREL
     Indication: POST COITAL CONTRACEPTION
     Dosage: 1.5 MILLIGRAM DAILY;
     Route: 048
     Dates: start: 20141115, end: 20141115
  4. VITAMIN B1 [Concomitant]
     Active Substance: THIAMINE HYDROCHLORIDE
     Indication: VITAMIN SUPPLEMENTATION

REACTIONS (2)
  - Coital bleeding [Recovered/Resolved]
  - Menstruation irregular [Not Recovered/Not Resolved]

NARRATIVE: CASE EVENT DATE: 20141120
